FAERS Safety Report 11835295 (Version 1)
Quarter: 2015Q4

REPORT INFORMATION
  Report Type: Spontaneous
  Country: FR (occurrence: FR)
  Receive Date: 20151215
  Receipt Date: 20151215
  Transmission Date: 20160305
  Serious: Yes (Hospitalization, Other)
  Sender: FDA-Public Use
  Company Number: FR-SHIRE-FR201516009

PATIENT

DRUGS (1)
  1. XAGRID [Suspect]
     Active Substance: ANAGRELIDE HYDROCHLORIDE
     Indication: PRODUCT USED FOR UNKNOWN INDICATION
     Dosage: UNK, UNKNOWN, VIA FEEDING TUBE
     Route: 050

REACTIONS (4)
  - Platelet count decreased [Not Recovered/Not Resolved]
  - Product use issue [Unknown]
  - Coma [Not Recovered/Not Resolved]
  - Enteral nutrition [Not Recovered/Not Resolved]
